FAERS Safety Report 11384413 (Version 1)
Quarter: 2015Q3

REPORT INFORMATION
  Report Type: Spontaneous
  Country: US (occurrence: US)
  Receive Date: 20150811
  Receipt Date: 20150811
  Transmission Date: 20151125
  Serious: No
  Sender: FDA-Public Use
  Company Number: US-ELI_LILLY_AND_COMPANY-US200910002484

PATIENT
  Sex: Female

DRUGS (7)
  1. ADCIRCA [Suspect]
     Active Substance: TADALAFIL
     Indication: PULMONARY ARTERIAL HYPERTENSION
     Dosage: 20 MG, DAILY (1/D)
     Dates: start: 20091008
  2. DIOVAN [Concomitant]
     Active Substance: VALSARTAN
  3. INSPRA [Concomitant]
     Active Substance: EPLERENONE
  4. TORSEMIDE. [Concomitant]
     Active Substance: TORSEMIDE
  5. K-DUR [Concomitant]
     Active Substance: POTASSIUM CHLORIDE
  6. ADCIRCA [Suspect]
     Active Substance: TADALAFIL
     Dosage: 40 MG, QD
     Dates: start: 201101
  7. COUMADIN [Concomitant]
     Active Substance: WARFARIN SODIUM

REACTIONS (4)
  - Drug ineffective [Recovered/Resolved]
  - Headache [Unknown]
  - Dyspnoea [Recovered/Resolved]
  - Dyspnoea [Not Recovered/Not Resolved]

NARRATIVE: CASE EVENT DATE: 20091009
